FAERS Safety Report 21328328 (Version 1)
Quarter: 2022Q3

REPORT INFORMATION
  Report Type: Report from Study
  Country: US (occurrence: US)
  Receive Date: 20220913
  Receipt Date: 20220913
  Transmission Date: 20221026
  Serious: Yes (Other)
  Sender: FDA-Public Use
  Company Number: US-ABBVIE-22K-163-4419492-00

PATIENT
  Sex: Female

DRUGS (2)
  1. HUMIRA [Suspect]
     Active Substance: ADALIMUMAB
     Indication: Rheumatoid arthritis
     Route: 058
  2. JANSSEN COVID-19 VACCINE [Concomitant]
     Active Substance: AD26.COV2.S
     Indication: COVID-19 immunisation
     Dosage: FIRST DOSE
     Route: 030
     Dates: start: 20210506, end: 20210506

REACTIONS (13)
  - Knee deformity [Unknown]
  - Skin mass [Unknown]
  - Joint range of motion decreased [Unknown]
  - Crepitations [Unknown]
  - Osteoarthritis [Unknown]
  - Obesity [Unknown]
  - Polyarthritis [Unknown]
  - Bone cyst [Unknown]
  - Exostosis [Unknown]
  - Joint space narrowing [Unknown]
  - Joint arthroplasty [Unknown]
  - Scar [Unknown]
  - Upper respiratory tract infection [Unknown]
